FAERS Safety Report 6784984-2 (Version None)
Quarter: 2010Q2

REPORT INFORMATION
  Report Type: 
  Country: None (occurrence: None)
  Receive Date: 20100622
  Receipt Date: 20100609
  Transmission Date: 20101027
  Serious: No
  Sender: FDA-Public Use
  Company Number: US-ASTRAZENECA-2010SE27169

PATIENT
  Age: 18 Year
  Sex: Male

DRUGS (2)
  1. SEROQUEL XR [Suspect]
     Indication: MAJOR DEPRESSION
     Dosage: DAILY
     Route: 048
  2. ZOLOFT [Concomitant]
     Indication: MAJOR DEPRESSION

REACTIONS (1)
  - WHITE BLOOD CELL COUNT DECREASED [None]
